FAERS Safety Report 13375486 (Version 1)
Quarter: 2017Q1

REPORT INFORMATION
  Report Type: Other
  Country: TH (occurrence: TH)
  Receive Date: 20170328
  Receipt Date: 20170328
  Transmission Date: 20170429
  Serious: Yes (Other)
  Sender: FDA-Public Use
  Company Number: TH-ORCHID HEALTHCARE-1064713

PATIENT

DRUGS (2)
  1. LEVETIRACETAM. [Suspect]
     Active Substance: LEVETIRACETAM
     Indication: BRAIN OPERATION
     Route: 065
  2. LEVETIRACETAM. [Suspect]
     Active Substance: LEVETIRACETAM
     Indication: EPILEPSY
     Route: 065

REACTIONS (3)
  - Rash erythematous [Unknown]
  - Cutaneous symptom [Unknown]
  - Thrombocytopenia [Unknown]
